FAERS Safety Report 25064943 (Version 1)
Quarter: 2025Q1

REPORT INFORMATION
  Report Type: Spontaneous
  Country: US (occurrence: None)
  Receive Date: 20250311
  Receipt Date: 20250311
  Transmission Date: 20250408
  Serious: Yes (Hospitalization)
  Sender: ACS DOBFAR
  Company Number: US-MLMSERVICE-20250225-PI420339-00214-1

PATIENT
  Age: 63 Year
  Sex: Male
  Weight: 107 kg

DRUGS (51)
  1. MEROPENEM [Suspect]
     Active Substance: MEROPENEM
     Indication: Septic shock
  2. VANCOMYCIN [Suspect]
     Active Substance: VANCOMYCIN
     Indication: Septic shock
  3. SODIUM BICARBONATE [Concomitant]
     Active Substance: SODIUM BICARBONATE
  4. ALBUTEROL [Concomitant]
     Active Substance: ALBUTEROL
  5. HYDROXYZINE [Concomitant]
     Active Substance: HYDROXYZINE HYDROCHLORIDE
  6. NOREPINEPHRINE [Concomitant]
     Active Substance: NOREPINEPHRINE
  7. ALTEPLASE [Concomitant]
     Active Substance: ALTEPLASE
  8. INSULIN ASPART [Concomitant]
     Active Substance: INSULIN ASPART
  9. PANTOPRAZOLE [Concomitant]
     Active Substance: PANTOPRAZOLE
  10. ATORVASTATIN [Concomitant]
     Active Substance: ATORVASTATIN
  11. INSULIN GLARGINE [Concomitant]
     Active Substance: INSULIN GLARGINE
  12. POLYETHYLENE GLYCOL [Concomitant]
     Active Substance: POLYETHYLENE GLYCOL
  13. AZITHROMYCIN [Concomitant]
     Active Substance: AZITHROMYCIN
  14. INSULIN NOS [Concomitant]
     Active Substance: INSULIN NOS
  15. PREDNISONE [Concomitant]
     Active Substance: PREDNISONE
  16. CALCIUM GLUCONATE [Concomitant]
     Active Substance: CALCIUM GLUCONATE
  17. IPRATROPIUM [Concomitant]
     Active Substance: IPRATROPIUM
  18. PROPOFOL [Concomitant]
     Active Substance: PROPOFOL
  19. CEFEPIME [Concomitant]
     Active Substance: CEFEPIME HYDROCHLORIDE
  20. KETAMINE [Concomitant]
     Active Substance: KETAMINE
  21. PROPRANOLOL [Concomitant]
     Active Substance: PROPRANOLOL HYDROCHLORIDE
  22. DEXMEDETOMIDINE [Concomitant]
     Active Substance: DEXMEDETOMIDINE
  23. LACTATED RINGERS SOLUTION [Concomitant]
     Active Substance: CALCIUM CHLORIDE\POTASSIUM CHLORIDE\SODIUM CHLORIDE\SODIUM LACTATE
  24. QUETIAPINE [Concomitant]
     Active Substance: QUETIAPINE
  25. DEXTROSE [Concomitant]
     Active Substance: DEXTROSE MONOHYDRATE
  26. LIDOCAINE [Concomitant]
     Active Substance: LIDOCAINE
     Route: 061
  27. RIVAROXABAN [Concomitant]
     Active Substance: RIVAROXABAN
  28. DULOXETINE [Concomitant]
     Active Substance: DULOXETINE
  29. LIDOCAINE\PRILOCAINE [Concomitant]
     Active Substance: LIDOCAINE\PRILOCAINE
     Route: 061
  30. SENNA [Concomitant]
     Active Substance: SENNOSIDES
  31. EMPAGLIFLOZIN [Concomitant]
     Active Substance: EMPAGLIFLOZIN
  32. LORATADINE [Concomitant]
     Active Substance: LORATADINE
  33. FENTANYL [Concomitant]
     Active Substance: FENTANYL
  34. MAGNESIUM SULFATE [Concomitant]
     Active Substance: MAGNESIUM SULFATE
  35. SODIUM CHLORIDE [Concomitant]
     Active Substance: SODIUM CHLORIDE
  36. FLUDROCORTISONE [Concomitant]
     Active Substance: FLUDROCORTISONE
  37. MELATONIN [Concomitant]
     Active Substance: MELATONIN
  38. SODIUM ZIRCONIUM CYCLOSILICATE [Concomitant]
     Active Substance: SODIUM ZIRCONIUM CYCLOSILICATE
  39. FLUTICASONE, SALMETEROL [Concomitant]
     Route: 055
  40. TAMSULOSIN [Concomitant]
     Active Substance: TAMSULOSIN
  41. FLUTICASONE [Concomitant]
     Active Substance: FLUTICASONE
  42. METHYLPREDNISOLONE [Concomitant]
     Active Substance: METHYLPREDNISOLONE
  43. TEMAZEPAM [Concomitant]
     Active Substance: TEMAZEPAM
  44. FUROSEMIDE [Concomitant]
     Active Substance: FUROSEMIDE
  45. METRONIDAZOLE [Concomitant]
     Active Substance: METRONIDAZOLE
  46. TIOTROPIUM [Concomitant]
     Active Substance: TIOTROPIUM
     Route: 055
  47. GABAPENTIN [Concomitant]
     Active Substance: GABAPENTIN
  48. MIDAZOLAM [Concomitant]
     Active Substance: MIDAZOLAM
  49. HEPARIN [Concomitant]
     Active Substance: HEPARIN SODIUM
  50. MONTELUKAST [Concomitant]
     Active Substance: MONTELUKAST
  51. VASOPRESSIN [Concomitant]
     Active Substance: VASOPRESSIN

REACTIONS (2)
  - Methaemoglobinaemia [Recovering/Resolving]
  - Off label use [Recovering/Resolving]
